FAERS Safety Report 10665286 (Version 3)
Quarter: 2015Q1

REPORT INFORMATION
  Report Type: Spontaneous
  Country: US (occurrence: US)
  Receive Date: 20141219
  Receipt Date: 20150304
  Transmission Date: 20150720
  Serious: Yes (Hospitalization)
  Sender: FDA-Public Use
  Company Number: US-PFIZER INC-2014349397

PATIENT
  Age: 69 Year
  Sex: Female

DRUGS (3)
  1. LYRICA [Suspect]
     Active Substance: PREGABALIN
     Dosage: UNK (INCREASED 3 PER DAY)
  2. LYRICA [Suspect]
     Active Substance: PREGABALIN
     Indication: NEURALGIA
     Dosage: 100 MG, 3X/DAY
     Dates: start: 201402
  3. HYDROCODONE W/ACETAMINOPHEN [Concomitant]
     Active Substance: ACETAMINOPHEN\HYDROCODONE BITARTRATE
     Dosage: (HYDROCODONE 5 MG/ ACETAMINOPHEN 325MG)
     Dates: start: 201410

REACTIONS (9)
  - Disease progression [Unknown]
  - Neuropathy peripheral [Unknown]
  - Dysstasia [Unknown]
  - Drug ineffective [Not Recovered/Not Resolved]
  - Therapeutic response unexpected [Unknown]
  - Pre-existing condition improved [Unknown]
  - Hypoaesthesia [Not Recovered/Not Resolved]
  - Grip strength decreased [Unknown]
  - Walking aid user [Unknown]

NARRATIVE: CASE EVENT DATE: 2014
